FAERS Safety Report 5820001-6 (Version None)
Quarter: 2008Q3

REPORT INFORMATION
  Report Type: 
  Country: None (occurrence: None)
  Receive Date: 20080718
  Receipt Date: 20080718
  Transmission Date: 20090109
  Serious: No
  Sender: FDA-Public Use
  Company Number: None

PATIENT
  Age: 47 Year
  Sex: Female
  Weight: 81.6475 kg

DRUGS (6)
  1. NEVANAC [Suspect]
     Indication: KERATITIS
     Dates: start: 20070715, end: 20070730
  2. NEVANAC [Suspect]
     Indication: KERATOMILEUSIS
     Dates: start: 20070715, end: 20070730
  3. NEVANAC [Suspect]
     Indication: PTERYGIUM
     Dates: start: 20070715, end: 20070730
  4. NEVANAC [Suspect]
     Indication: KERATITIS
     Dates: start: 20071015, end: 20080707
  5. NEVANAC [Suspect]
     Indication: KERATOMILEUSIS
     Dates: start: 20071015, end: 20080707
  6. NEVANAC [Suspect]
     Indication: PTERYGIUM
     Dates: start: 20071015, end: 20080707

REACTIONS (5)
  - CONDITION AGGRAVATED [None]
  - HAEMORRHAGE [None]
  - POST PROCEDURAL HAEMATOMA [None]
  - PTERYGIUM [None]
  - SCAR [None]
